FAERS Safety Report 9182500 (Version 1)
Quarter: 2013Q1

REPORT INFORMATION
  Report Type: Spontaneous
  Country: US (occurrence: US)
  Receive Date: 20130322
  Receipt Date: 20130322
  Transmission Date: 20140127
  Serious: Yes (Hospitalization)
  Sender: FDA-Public Use
  Company Number: US-BRISTOL-MYERS SQUIBB COMPANY-16778516

PATIENT
  Age: 52 Year
  Sex: Male
  Weight: 65.76 kg

DRUGS (3)
  1. ERBITUX [Suspect]
     Indication: HEAD AND NECK CANCER
     Route: 042
     Dates: start: 201206
  2. PERCOCET [Concomitant]
     Indication: PAIN
  3. LOVENOX [Concomitant]

REACTIONS (1)
  - Anaphylactic reaction [Unknown]
